FAERS Safety Report 8588452-7 (Version None)
Quarter: 2012Q3

REPORT INFORMATION
  Report Type: 
  Country: None (occurrence: None)
  Receive Date: 20120813
  Receipt Date: 20120803
  Transmission Date: 20120928
  Serious: Yes (Other)
  Sender: FDA-Public Use
  Company Number: BR-SANOFI-AVENTIS-2012SA056071

PATIENT
  Age: 60 Year
  Sex: Female
  Weight: 96 kg

DRUGS (12)
  1. LANTUS [Suspect]
     Indication: TYPE 2 DIABETES MELLITUS
     Route: 058
     Dates: start: 20040101
  2. ASPIRIN [Concomitant]
     Indication: BLOOD PRESSURE
     Route: 048
     Dates: start: 20070101
  3. ADALAT [Concomitant]
     Indication: BLOOD PRESSURE
     Route: 048
     Dates: start: 20110101
  4. CRESTOR [Concomitant]
     Route: 048
     Dates: start: 20090101
  5. METFORMIN HYDROCHLORIDE [Concomitant]
     Indication: TYPE 2 DIABETES MELLITUS
     Route: 048
     Dates: start: 20010101
  6. HUMALOG [Concomitant]
     Indication: TYPE 2 DIABETES MELLITUS
     Dosage: DOSE:ACCORDING TO BLOOD GLUCOSE LEVEL
     Route: 058
     Dates: start: 20090101
  7. BENICAR [Concomitant]
     Indication: BLOOD PRESSURE
     Route: 048
     Dates: start: 20100101
  8. INDAPAMIDE [Concomitant]
     Indication: MICTURITION DISORDER
     Route: 048
     Dates: start: 20070101
  9. JANUMET [Suspect]
     Route: 065
     Dates: start: 20120802
  10. OLCADIL [Concomitant]
     Route: 048
     Dates: start: 20080101
  11. METOPROLOL SUCCINATE [Concomitant]
     Dates: start: 20070101
  12. PLAVIX [Concomitant]
     Route: 048
     Dates: start: 20090101

REACTIONS (2)
  - CARDIAC DISORDER [None]
  - INJECTION SITE HAEMATOMA [None]
